FAERS Safety Report 11281828 (Version 4)
Quarter: 2016Q4

REPORT INFORMATION
  Report Type: Report from Study
  Country: US (occurrence: US)
  Receive Date: 20150717
  Receipt Date: 20161125
  Transmission Date: 20170206
  Serious: No
  Sender: FDA-Public Use
  Company Number: PHEH2014US022122

PATIENT
  Age: 4 Year
  Sex: Female

DRUGS (5)
  1. TRILEPTAL [Concomitant]
     Active Substance: OXCARBAZEPINE
     Indication: PRODUCT USED FOR UNKNOWN INDICATION
     Route: 065
  2. AFINITOR [Suspect]
     Active Substance: EVEROLIMUS
     Indication: GANGLIOGLIOMA
     Dosage: 5 MG, QD
     Route: 048
     Dates: start: 20130726, end: 20150608
  3. MULTI VITAMIN [Concomitant]
     Active Substance: VITAMINS
     Indication: PRODUCT USED FOR UNKNOWN INDICATION
     Route: 065
  4. AFINITOR [Suspect]
     Active Substance: EVEROLIMUS
     Indication: ASTROCYTOMA, LOW GRADE
     Dosage: 2.5 MG, UNK
     Route: 048
     Dates: start: 20150706
  5. AFINITOR [Suspect]
     Active Substance: EVEROLIMUS
     Dosage: 7.5 MG, QD
     Route: 048

REACTIONS (9)
  - Respiratory tract congestion [Unknown]
  - Pyrexia [Recovered/Resolved]
  - Hypersensitivity [Unknown]
  - Blood cholesterol increased [Unknown]
  - Nasopharyngitis [Recovered/Resolved]
  - Pharyngitis streptococcal [Unknown]
  - Malaise [Unknown]
  - Blood triglycerides increased [Recovered/Resolved]
  - Gastroenteritis viral [Recovered/Resolved]

NARRATIVE: CASE EVENT DATE: 20141031
